FAERS Safety Report 7361219-3 (Version None)
Quarter: 2011Q1

REPORT INFORMATION
  Report Type: 
  Country: None (occurrence: None)
  Receive Date: 20110318
  Receipt Date: 20110225
  Transmission Date: 20110831
  Serious: No
  Sender: FDA-Public Use
  Company Number: US-BAYER-2011-019112

PATIENT
  Sex: Male
  Weight: 97 kg

DRUGS (6)
  1. METOPROLOL SUCCINATE [Concomitant]
     Dosage: UNK
     Route: 048
  2. PRILOSEC [Concomitant]
     Dosage: UNK
     Route: 048
  3. GLYBURIDE [Concomitant]
     Dosage: UNK
     Route: 048
  4. DILACOR XR [Concomitant]
     Dosage: UNK
     Route: 048
  5. ALEVE (CAPLET) [Suspect]
     Indication: ANALGESIC THERAPY
     Dosage: DAILY, ONCE
     Route: 048
     Dates: start: 20110225
  6. LIPITOR [Concomitant]
     Dosage: UNK
     Route: 048

REACTIONS (1)
  - DIARRHOEA [None]
